FAERS Safety Report 17769694 (Version 1)
Quarter: 2020Q2

REPORT INFORMATION
  Report Type: Spontaneous
  Country: US (occurrence: US)
  Receive Date: 20200511
  Receipt Date: 20200511
  Transmission Date: 20200714
  Serious: Yes (Other)
  Sender: FDA-Public Use
  Company Number: None

PATIENT
  Sex: Female

DRUGS (2)
  1. SULFASALAZINE. [Suspect]
     Active Substance: SULFASALAZINE
  2. BALSALAZIDE [Suspect]
     Active Substance: BALSALAZIDE

REACTIONS (3)
  - Condition aggravated [None]
  - Rectal haemorrhage [None]
  - Headache [None]
